FAERS Safety Report 4659518-9 (Version None)
Quarter: 2005Q2

REPORT INFORMATION
  Report Type: 
  Country: None (occurrence: None)
  Receive Date: 20050511
  Receipt Date: 20040510
  Transmission Date: 20051028
  Serious: Yes (Hospitalization, Disabling)
  Sender: FDA-Public Use
  Company Number: US-MERCK-0405USA00655

PATIENT
  Age: 53 Year
  Sex: Male
  Weight: 82 kg

DRUGS (5)
  1. VIOXX [Suspect]
     Indication: SHOULDER PAIN
     Route: 048
     Dates: start: 19990701, end: 20001101
  2. VIOXX [Suspect]
     Route: 048
     Dates: start: 20001201, end: 20021113
  3. VIOXX [Suspect]
     Indication: ARTHRALGIA
     Route: 048
     Dates: start: 19990701, end: 20001101
  4. VIOXX [Suspect]
     Route: 048
     Dates: start: 20001201, end: 20021113
  5. PRILOSEC [Concomitant]
     Indication: GASTROOESOPHAGEAL REFLUX DISEASE
     Route: 065

REACTIONS (10)
  - ACUTE MYOCARDIAL INFARCTION [None]
  - ANAEMIA [None]
  - ATHEROSCLEROSIS [None]
  - CARDIAC MURMUR [None]
  - CORONARY ARTERY DISEASE [None]
  - DRUG TOXICITY [None]
  - HYPERTENSION [None]
  - PAIN [None]
  - RASH [None]
  - URTICARIA [None]
